FAERS Safety Report 11338101 (Version 1)
Quarter: 2015Q3

REPORT INFORMATION
  Report Type: Spontaneous
  Country: US (occurrence: US)
  Receive Date: 20150803
  Receipt Date: 20150803
  Transmission Date: 20151125
  Serious: No
  Sender: FDA-Public Use
  Company Number: US-ELI_LILLY_AND_COMPANY-US_010158681

PATIENT
  Age: 61 Year
  Sex: Female
  Weight: 88.64 kg

DRUGS (5)
  1. ZYPREXA [Suspect]
     Active Substance: OLANZAPINE
     Dosage: 25 MG, UNK
     Dates: start: 200408, end: 200411
  2. ZYPREXA [Suspect]
     Active Substance: OLANZAPINE
     Indication: SCHIZOPHRENIA, PARANOID TYPE
     Dosage: 20 MG, DAILY (1/D)
     Route: 048
     Dates: start: 1998, end: 200408
  3. ZYPREXA ZYDIS [Suspect]
     Active Substance: OLANZAPINE
     Dosage: 35 MG, DAILY (1/D)
     Route: 048
  4. ZYPREXA ZYDIS [Suspect]
     Active Substance: OLANZAPINE
     Dosage: 15 MG, 2/D
  5. ZYPREXA ZYDIS [Suspect]
     Active Substance: OLANZAPINE
     Indication: PAIN
     Dosage: 35 MG, DAILY (1/D)
     Route: 048
     Dates: start: 200411

REACTIONS (32)
  - Cerebrovascular accident [Unknown]
  - Lymph node pain [Not Recovered/Not Resolved]
  - Feeling abnormal [Recovered/Resolved]
  - Dyspnoea [Not Recovered/Not Resolved]
  - Hearing impaired [Unknown]
  - Somnolence [Unknown]
  - Headache [Not Recovered/Not Resolved]
  - Breast enlargement [Unknown]
  - Balance disorder [Recovered/Resolved]
  - Blood pressure increased [Unknown]
  - Tremor [Not Recovered/Not Resolved]
  - Thinking abnormal [Not Recovered/Not Resolved]
  - Pain in extremity [Not Recovered/Not Resolved]
  - Weight increased [Recovering/Resolving]
  - Alopecia [Unknown]
  - Cerebrovascular accident [Recovered/Resolved]
  - Nausea [Unknown]
  - Alopecia [Not Recovered/Not Resolved]
  - Constipation [Not Recovered/Not Resolved]
  - Chest pain [Unknown]
  - Rectal tenesmus [Unknown]
  - Constipation [Recovered/Resolved]
  - Pain in extremity [Unknown]
  - Amnesia [Not Recovered/Not Resolved]
  - Vaginal discharge [Unknown]
  - Malaise [Unknown]
  - Insomnia [Unknown]
  - Musculoskeletal stiffness [Not Recovered/Not Resolved]
  - Diarrhoea [Unknown]
  - Prescribed overdose [Not Recovered/Not Resolved]
  - Drug tolerance decreased [Unknown]
  - Back pain [Not Recovered/Not Resolved]

NARRATIVE: CASE EVENT DATE: 200101
